FAERS Safety Report 4996254-3 (Version None)
Quarter: 2006Q2

REPORT INFORMATION
  Report Type: 
  Country: None (occurrence: None)
  Receive Date: 20060505
  Receipt Date: 20060430
  Transmission Date: 20061013
  Serious: Yes (Other)
  Sender: FDA-Public Use
  Company Number: 13971

PATIENT
  Age: 21 Year
  Sex: Female

DRUGS (1)
  1. ARA-C [Suspect]
     Indication: LEUKAEMIA RECURRENT

REACTIONS (2)
  - CONVERSION DISORDER [None]
  - FEAR OF DISEASE [None]
